FAERS Safety Report 18277768 (Version 1)
Quarter: 2020Q3

REPORT INFORMATION
  Report Type: Spontaneous
  Country: US (occurrence: US)
  Receive Date: 20200917
  Receipt Date: 20200917
  Transmission Date: 20201103
  Serious: Yes (Hospitalization)
  Sender: FDA-Public Use
  Company Number: None

PATIENT
  Age: 4 Year
  Sex: Female

DRUGS (3)
  1. SINGULAIR [Concomitant]
     Active Substance: MONTELUKAST SODIUM
  2. SILDENAFIL. [Suspect]
     Active Substance: SILDENAFIL
     Indication: ACUTE RESPIRATORY FAILURE
     Route: 048
  3. SILDENAFIL. [Suspect]
     Active Substance: SILDENAFIL
     Indication: CHRONIC RESPIRATORY DISEASE
     Route: 048

REACTIONS (2)
  - Catheterisation cardiac [None]
  - Magnetic resonance imaging heart [None]

NARRATIVE: CASE EVENT DATE: 20200902
